FAERS Safety Report 20770740 (Version 7)
Quarter: 2023Q1

REPORT INFORMATION
  Report Type: Spontaneous
  Country: US (occurrence: US)
  Receive Date: 20220429
  Receipt Date: 20230315
  Transmission Date: 20230418
  Serious: No
  Sender: FDA-Public Use
  Company Number: US-PFIZER INC-202200598819

PATIENT
  Age: 55 Year
  Sex: Male

DRUGS (1)
  1. XELJANZ [Suspect]
     Active Substance: TOFACITINIB CITRATE
     Indication: Rheumatoid arthritis
     Dosage: UNK

REACTIONS (6)
  - Drug ineffective [Unknown]
  - Illness [Unknown]
  - Upper respiratory tract infection [Unknown]
  - Nasopharyngitis [Recovered/Resolved]
  - Product dose omission issue [Unknown]
  - Chills [Unknown]
